FAERS Safety Report 4721451-1 (Version None)
Quarter: 2005Q3

REPORT INFORMATION
  Report Type: 
  Country: None (occurrence: None)
  Receive Date: 20050721
  Receipt Date: 20040913
  Transmission Date: 20060218
  Serious: No
  Sender: FDA-Public Use
  Company Number: US-BRISTOL-MYERS SQUIBB COMPANY-12701041

PATIENT
  Age: 74 Year
  Sex: Male
  Weight: 104 kg

DRUGS (1)
  1. COUMADIN [Suspect]
     Indication: THROMBOSIS
     Dosage: DURATION OF THERAPY:  ^4-5 DAYS^
     Route: 048

REACTIONS (2)
  - HYPOAESTHESIA ORAL [None]
  - LIP PAIN [None]
